FAERS Safety Report 5828321-6 (Version None)
Quarter: 2008Q3

REPORT INFORMATION
  Report Type: 
  Country: None (occurrence: None)
  Receive Date: 20080729
  Receipt Date: 20080722
  Transmission Date: 20090109
  Serious: Yes (Hospitalization, Other)
  Sender: FDA-Public Use
  Company Number: 2008SP007811

PATIENT
  Age: 59 Year
  Sex: Male
  Weight: 58 kg

DRUGS (3)
  1. PEG-INTRON [Suspect]
     Indication: HEPATITIS C
     Dosage: 80 MCG; QW; SC
     Route: 058
     Dates: start: 20080206
  2. REBETOL [Suspect]
     Indication: HEPATITIS C
     Dosage: 600 MG; QD; PO; 400 MG; QD; PO
     Route: 048
     Dates: start: 20080206, end: 20080225
  3. REBETOL [Suspect]
     Indication: HEPATITIS C
     Dosage: 600 MG; QD; PO; 400 MG; QD; PO
     Route: 048
     Dates: start: 20080226, end: 20080312

REACTIONS (4)
  - ANAEMIA [None]
  - LEFT ATRIAL DILATATION [None]
  - RIGHT VENTRICULAR HYPERTROPHY [None]
  - VENTRICULAR SEPTAL DEFECT ACQUIRED [None]
